FAERS Safety Report 7990106-2 (Version None)
Quarter: 2011Q4

REPORT INFORMATION
  Report Type: 
  Country: None (occurrence: None)
  Receive Date: 20111219
  Receipt Date: 20110901
  Transmission Date: 20120403
  Serious: Yes (Death, Other)
  Sender: FDA-Public Use
  Company Number: US-ASTRAZENECA-2011SE49253

PATIENT
  Age: 83 Year
  Sex: Female

DRUGS (6)
  1. JANYUBIA [Concomitant]
  2. PLAVIX [Concomitant]
  3. CRESTOR [Suspect]
     Indication: LOW DENSITY LIPOPROTEIN INCREASED
     Route: 048
  4. ASPIRIN [Concomitant]
  5. TOREG [Concomitant]
  6. ONGLYZA [Concomitant]

REACTIONS (3)
  - BLOOD CREATINE PHOSPHOKINASE INCREASED [None]
  - RENAL FAILURE [None]
  - RHABDOMYOLYSIS [None]
